FAERS Safety Report 10015342 (Version 1)
Quarter: 2014Q1

REPORT INFORMATION
  Report Type: Spontaneous
  Country: US (occurrence: US)
  Receive Date: 20140317
  Receipt Date: 20140317
  Transmission Date: 20141002
  Serious: No
  Sender: FDA-Public Use
  Company Number: US-PFIZER INC-2014076581

PATIENT
  Age: 36 Year
  Sex: Male
  Weight: 69.84 kg

DRUGS (1)
  1. CELEBREX [Suspect]
     Indication: BACK PAIN
     Dosage: 100 MG, 1X/DAY
     Dates: start: 201403

REACTIONS (3)
  - Arthralgia [Unknown]
  - Influenza like illness [Unknown]
  - Pain [Unknown]
